FAERS Safety Report 4963217-3 (Version None)
Quarter: 2006Q2

REPORT INFORMATION
  Report Type: 
  Country: None (occurrence: None)
  Receive Date: 20060405
  Receipt Date: 20051130
  Transmission Date: 20061013
  Serious: Yes (Hospitalization, Other)
  Sender: FDA-Public Use
  Company Number: US-MERCK-0512USA00037

PATIENT
  Age: 72 Year
  Sex: Female
  Weight: 100 kg

DRUGS (9)
  1. VIOXX [Suspect]
     Indication: ARTHRITIS
     Route: 048
     Dates: start: 19990101, end: 20040901
  2. VITAMINS (UNSPECIFIED) [Concomitant]
     Route: 065
  3. COZAAR [Concomitant]
     Route: 065
  4. CLONIDINE [Concomitant]
     Route: 065
  5. PRAVACHOL [Concomitant]
     Route: 065
  6. LASIX [Concomitant]
     Route: 065
  7. GLYBURIDE [Concomitant]
     Route: 065
  8. NITROGLYCERIN [Concomitant]
     Route: 065
  9. PREVACID [Concomitant]
     Route: 065

REACTIONS (9)
  - ACUTE MYOCARDIAL INFARCTION [None]
  - ANGINA PECTORIS [None]
  - BLOOD PRESSURE [None]
  - CHEST PAIN [None]
  - CORONARY ARTERY DISEASE [None]
  - DYSPNOEA EXERTIONAL [None]
  - FATIGUE [None]
  - MYOCARDIAL INFARCTION [None]
  - PANIC ATTACK [None]
